FAERS Safety Report 13805015 (Version 2)
Quarter: 2017Q3

REPORT INFORMATION
  Report Type: Spontaneous
  Country: US (occurrence: US)
  Receive Date: 20170728
  Receipt Date: 20170822
  Transmission Date: 20171127
  Serious: Yes (Other)
  Sender: FDA-Public Use
  Company Number: US-JNJCP-30000396654

PATIENT
  Sex: Male
  Weight: 113 kg

DRUGS (2)
  1. NEUTROGENA BEACH DEFENSE WATER PLUS SUN BARRIER SUNSCREEN BROAD SPECTRUM SPF70 [Suspect]
     Active Substance: AVOBENZONE\HOMOSALATE\OCTISALATE\OCTOCRYLENE\OXYBENZONE
     Indication: PROPHYLAXIS
     Dosage: LIBERALLY, THREE TIMES FOR EVERY ONE AND HALF HOUR
     Route: 061
     Dates: start: 20170704, end: 20170704
  2. MULTI VITAMIN [Concomitant]
     Active Substance: VITAMINS
     Indication: ROUTINE HEALTH MAINTENANCE

REACTIONS (1)
  - Sunburn [Recovered/Resolved]

NARRATIVE: CASE EVENT DATE: 20170704
